FAERS Safety Report 15302935 (Version 1)
Quarter: 2018Q3

REPORT INFORMATION
  Report Type: Spontaneous
  Country: MY (occurrence: MY)
  Receive Date: 20180821
  Receipt Date: 20180821
  Transmission Date: 20181010
  Serious: No
  Sender: FDA-Public Use
  Company Number: MY-ALLERGAN-1840439US

PATIENT
  Age: 33 Year
  Sex: Female

DRUGS (1)
  1. ASENAPINE MALEATE ? BP [Suspect]
     Active Substance: ASENAPINE MALEATE
     Indication: PRODUCT USED FOR UNKNOWN INDICATION
     Dosage: 10 MG, QHS
     Route: 048

REACTIONS (4)
  - Incorrect route of drug administration [Unknown]
  - Oral mucosal eruption [Unknown]
  - Rash [Unknown]
  - Off label use [Unknown]
